FAERS Safety Report 4555057-4 (Version None)
Quarter: 2005Q1

REPORT INFORMATION
  Report Type: 
  Country: None (occurrence: None)
  Receive Date: 20041228
  Receipt Date: 20040907
  Transmission Date: 20050727
  Serious: Yes (Other)
  Sender: FDA-Public Use
  Company Number: PHEH2004US09604

PATIENT
  Age: 85 Year
  Sex: Male

DRUGS (18)
  1. AREDIA [Suspect]
     Dosage: SEE IMAGE
     Dates: start: 19970101, end: 20040201
  2. AREDIA [Suspect]
     Dosage: SEE IMAGE
     Dates: start: 20040301
  3. LOVENOX [Concomitant]
  4. ARANESP [Concomitant]
  5. ESTINYL [Concomitant]
  6. ANDROGEL [Concomitant]
  7. AVODART [Concomitant]
  8. FLORINETOL [Concomitant]
  9. BEXTRA [Concomitant]
  10. PREVACID [Concomitant]
  11. SYNTHROID [Concomitant]
  12. TOPROL-XL [Concomitant]
  13. FUROSEMIDE [Concomitant]
  14. ALDACTONE [Concomitant]
  15. PLAVIX (CLOPDIOGREL SULFATE) [Concomitant]
  16. LUPRON [Concomitant]
  17. ZOLADEX [Concomitant]
  18. FLUTAMIDE [Concomitant]

REACTIONS (3)
  - OSTEONECROSIS [None]
  - TOOTH EXTRACTION [None]
  - WOUND DEBRIDEMENT [None]
